FAERS Safety Report 13398058 (Version 1)
Quarter: 2017Q2

REPORT INFORMATION
  Report Type: Spontaneous
  Country: TR (occurrence: TR)
  Receive Date: 20170403
  Receipt Date: 20170403
  Transmission Date: 20170830
  Serious: Yes (Death, Hospitalization)
  Sender: FDA-Public Use
  Company Number: TR-UNICHEM LABORATORIES LIMITED-UCM201703-000079

PATIENT
  Age: 76 Year
  Sex: Female
  Weight: 80 kg

DRUGS (2)
  1. AMLODIPINE [Suspect]
     Active Substance: AMLODIPINE BESYLATE
     Indication: SUICIDE ATTEMPT
  2. ASPIRIN. [Concomitant]
     Active Substance: ASPIRIN

REACTIONS (11)
  - Completed suicide [Fatal]
  - Metabolic acidosis [Fatal]
  - Myocardial depression [Unknown]
  - Loss of consciousness [Unknown]
  - Lactic acidosis [Fatal]
  - Toxicity to various agents [Unknown]
  - Cardiac arrest [Unknown]
  - Intentional overdose [Fatal]
  - Ischaemia [Fatal]
  - Bradycardia [Fatal]
  - Sinus bradycardia [Unknown]
